FAERS Safety Report 7463979-X (Version None)
Quarter: 2011Q2

REPORT INFORMATION
  Report Type: 
  Country: None (occurrence: None)
  Receive Date: 20110506
  Receipt Date: 20110425
  Transmission Date: 20111010
  Serious: Yes (Hospitalization)
  Sender: FDA-Public Use
  Company Number: US-CELGENEUS-163-50794-11043236

PATIENT
  Sex: Female
  Weight: 65.4 kg

DRUGS (2)
  1. MIDOSTAURIN [Suspect]
     Dosage: 75 MILLIGRAM
     Route: 048
     Dates: start: 20110421
  2. VIDAZA [Suspect]
     Dosage: 75 MILLIGRAM/SQ. METER
     Route: 051
     Dates: start: 20110414, end: 20110420

REACTIONS (2)
  - ABSCESS [None]
  - LARGE INTESTINE PERFORATION [None]
